FAERS Safety Report 6522137-3 (Version None)
Quarter: 2009Q4

REPORT INFORMATION
  Report Type: 
  Country: None (occurrence: None)
  Receive Date: 20091224
  Receipt Date: 20091216
  Transmission Date: 20100525
  Serious: Yes (Hospitalization, Other)
  Sender: FDA-Public Use
  Company Number: 2009US004327

PATIENT
  Age: 66 Year
  Sex: Male

DRUGS (5)
  1. PROGRAF [Suspect]
     Indication: RENAL TRANSPLANT
     Dosage: 2 MG, BID, ORAL; 0.5 MG, BID, ORAL; 1 MG, BID, ORAL
     Route: 048
     Dates: start: 20091211, end: 20091214
  2. PROGRAF [Suspect]
     Indication: RENAL TRANSPLANT
     Dosage: 2 MG, BID, ORAL; 0.5 MG, BID, ORAL; 1 MG, BID, ORAL
     Route: 048
     Dates: start: 20030101
  3. PROGRAF [Suspect]
     Indication: RENAL TRANSPLANT
     Dosage: 2 MG, BID, ORAL; 0.5 MG, BID, ORAL; 1 MG, BID, ORAL
     Route: 048
     Dates: start: 20091215
  4. PROGRAF [Suspect]
     Indication: RENAL TRANSPLANT
     Dosage: 2 MG, UID/QD, IV NOS
     Route: 042
     Dates: start: 20091128, end: 20091129
  5. AMIODARONE HCL [Suspect]
     Indication: DRUG USE FOR UNKNOWN INDICATION
     Dates: start: 20090101, end: 20090101

REACTIONS (2)
  - GASTROINTESTINAL HAEMORRHAGE [None]
  - IMMUNOSUPPRESSANT DRUG LEVEL INCREASED [None]
